FAERS Safety Report 9414592 (Version 1)
Quarter: 2013Q3

REPORT INFORMATION
  Report Type: Spontaneous
  Country: US (occurrence: US)
  Receive Date: 20130723
  Receipt Date: 20130723
  Transmission Date: 20140515
  Serious: Yes (Other)
  Sender: FDA-Public Use
  Company Number: US-BAYER-2013-088540

PATIENT
  Age: 74 Year
  Sex: Male

DRUGS (2)
  1. SORAFENIB (RAF KINASE INHIBITOR) [Suspect]
     Indication: HEPATOCELLULAR CARCINOMA
  2. ADRIAMYCIN [Concomitant]
     Indication: HEPATOCELLULAR CARCINOMA

REACTIONS (2)
  - Oedema peripheral [None]
  - Deep vein thrombosis [None]
